FAERS Safety Report 20719005 (Version 1)
Quarter: 2022Q2

REPORT INFORMATION
  Report Type: Spontaneous
  Country: US (occurrence: None)
  Receive Date: 20220415
  Receipt Date: 20220415
  Transmission Date: 20220720
  Serious: Yes (Other)
  Sender: FDA-Public Use
  Company Number: None

PATIENT
  Weight: 84.37 kg

DRUGS (1)
  1. DICLOFENAC [Suspect]
     Active Substance: DICLOFENAC
     Indication: Product used for unknown indication
     Dosage: 1 PILL TWICE DAILY    MOUTH
     Route: 048
     Dates: start: 20220225, end: 20220228

REACTIONS (11)
  - Alopecia areata [None]
  - Skin irritation [None]
  - Pruritus [None]
  - Formication [None]
  - Inflammation [None]
  - Skin disorder [None]
  - Burning sensation [None]
  - Insomnia [None]
  - Agitation [None]
  - Mood swings [None]
  - Dizziness [None]
